FAERS Safety Report 7634075-3 (Version None)
Quarter: 2011Q3

REPORT INFORMATION
  Report Type: 
  Country: None (occurrence: None)
  Receive Date: 20110725
  Receipt Date: 20110718
  Transmission Date: 20111222
  Serious: Yes (Hospitalization, Other)
  Sender: FDA-Public Use
  Company Number: CA-ABBOTT-11P-028-0838437-00

PATIENT
  Sex: Female
  Weight: 74.91 kg

DRUGS (4)
  1. HUMIRA [Suspect]
     Indication: CROHN'S DISEASE
     Route: 058
  2. HUMIRA [Suspect]
     Route: 058
     Dates: end: 20110701
  3. METHOTREXATE [Suspect]
     Route: 058
     Dates: start: 20110630
  4. CIPROFLOXACIN HCL [Concomitant]
     Indication: INTESTINAL FISTULA INFECTION
     Route: 048
     Dates: start: 20110628

REACTIONS (17)
  - INTESTINAL FISTULA INFECTION [None]
  - IMPAIRED HEALING [None]
  - ARTHRALGIA [None]
  - ABSCESS INTESTINAL [None]
  - VOMITING [None]
  - NAUSEA [None]
  - PURULENT DISCHARGE [None]
  - FISTULA [None]
  - DRUG INEFFECTIVE [None]
  - INJECTION SITE PAIN [None]
  - GASTRITIS EROSIVE [None]
  - ERYTHEMA [None]
  - ENTEROCUTANEOUS FISTULA [None]
  - WEIGHT DECREASED [None]
  - PAIN OF SKIN [None]
  - FISTULA DISCHARGE [None]
  - EXCORIATION [None]
